FAERS Safety Report 7249161-X (Version None)
Quarter: 2011Q1

REPORT INFORMATION
  Report Type: 
  Country: None (occurrence: None)
  Receive Date: 20110119
  Receipt Date: 20110106
  Transmission Date: 20110831
  Serious: Yes (Hospitalization)
  Sender: FDA-Public Use
  Company Number: 024348

PATIENT
  Sex: Male
  Weight: 49.9 kg

DRUGS (7)
  1. ONEALFA [Concomitant]
  2. LEVETIRACETAM [Suspect]
     Indication: EPILEPSY
     Dosage: 1500 MG BID, ORAL
     Route: 048
     Dates: start: 20061206
  3. TOPIRAMATE [Concomitant]
  4. PYRIDOXAL PHOSPHATE [Concomitant]
  5. OSPOLOT [Concomitant]
  6. RIVOTRIL [Concomitant]
  7. DEPAKENE [Concomitant]

REACTIONS (6)
  - ANAEMIA [None]
  - FOLATE DEFICIENCY [None]
  - GLYCOSYLATED HAEMOGLOBIN INCREASED [None]
  - VITAMIN B12 DEFICIENCY [None]
  - HOMOCYSTINURIA [None]
  - WEIGHT DECREASED [None]
